FAERS Safety Report 25138774 (Version 1)
Quarter: 2025Q1

REPORT INFORMATION
  Report Type: Spontaneous
  Country: US (occurrence: US)
  Receive Date: 20250331
  Receipt Date: 20250331
  Transmission Date: 20250408
  Serious: No
  Sender: GLAXOSMITHKLINE
  Company Number: US-GSK-US2025027810

PATIENT
  Sex: Female

DRUGS (4)
  1. TRELEGY ELLIPTA [Suspect]
     Active Substance: FLUTICASONE FUROATE\UMECLIDINIUM BROMIDE\VILANTEROL TRIFENATATE
     Indication: Chronic obstructive pulmonary disease
     Dosage: UNK UNK, QD (100)
     Route: 055
  2. HYDROGEN PEROXIDE [Suspect]
     Active Substance: HYDROGEN PEROXIDE
     Indication: Oral mucosal blistering
     Dosage: UNK UNK, QD, RINSE MOUTH DAILY
  3. XARELTO [Suspect]
     Active Substance: RIVAROXABAN
     Indication: Cardiac operation
     Dosage: UNK UNK, QD
     Dates: start: 2018
  4. XARELTO [Suspect]
     Active Substance: RIVAROXABAN
     Indication: Anticoagulant therapy

REACTIONS (10)
  - Influenza like illness [Recovering/Resolving]
  - Dysphonia [Recovering/Resolving]
  - Aphonia [Recovering/Resolving]
  - Oral mucosal blistering [Recovering/Resolving]
  - Insomnia [Recovering/Resolving]
  - Sleep disorder [Recovering/Resolving]
  - Ear pain [Recovering/Resolving]
  - Sinus pain [Recovering/Resolving]
  - Tremor [Recovering/Resolving]
  - Sputum discoloured [Recovering/Resolving]
